FAERS Safety Report 18648456 (Version 1)
Quarter: 2020Q4

REPORT INFORMATION
  Report Type: Spontaneous
  Country: GB (occurrence: GB)
  Receive Date: 20201222
  Receipt Date: 20201222
  Transmission Date: 20210114
  Serious: Yes (Hospitalization, Disabling, Other)
  Sender: FDA-Public Use
  Company Number: GB-TEVA-2020-GB-1859623

PATIENT
  Age: 62 Year
  Sex: Male
  Weight: 104.6 kg

DRUGS (37)
  1. TEVA UK FLUDARABINE [Suspect]
     Active Substance: FLUDARABINE PHOSPHATE
     Indication: ALLOGENIC STEM CELL TRANSPLANTATION
     Dosage: 67.5 MG
     Route: 042
     Dates: start: 20200805, end: 20200809
  2. LEVOMEPROMAZINE [Concomitant]
     Active Substance: LEVOMEPROMAZINE
  3. URSODEOXYCHOLIC ACID [Concomitant]
     Active Substance: URSODIOL
  4. VANCOMYCIN [Concomitant]
     Active Substance: VANCOMYCIN
  5. NYSTATIN. [Concomitant]
     Active Substance: NYSTATIN
  6. DIPEPTIVEN [Concomitant]
     Active Substance: ALANYL GLUTAMINE
  7. POSACONAZOLE [Concomitant]
     Active Substance: POSACONAZOLE
  8. BUDESONIDE. [Concomitant]
     Active Substance: BUDESONIDE
  9. TEICOPLANIN [Concomitant]
     Active Substance: TEICOPLANIN
  10. APREPITANT. [Concomitant]
     Active Substance: APREPITANT
  11. COTRIMOXAZOLE [Concomitant]
     Active Substance: SULFAMETHOXAZOLE\TRIMETHOPRIM
  12. ALPHA-TOCOPHEROL [Concomitant]
     Active Substance: .ALPHA.-TOCOPHEROL
  13. ALLOPURINOL. [Concomitant]
     Active Substance: ALLOPURINOL
  14. ENOXAPARIN [Concomitant]
     Active Substance: ENOXAPARIN
  15. CHLORPHENAMINE [Concomitant]
     Active Substance: CHLORPHENIRAMINE MALEATE
  16. MIRTAZAPINE. [Concomitant]
     Active Substance: MIRTAZAPINE
  17. FUROSEMIDE. [Concomitant]
     Active Substance: FUROSEMIDE
  18. CICLOSPORIN [Concomitant]
     Active Substance: CYCLOSPORINE
  19. SIROLIMUS. [Concomitant]
     Active Substance: SIROLIMUS
  20. MEROPENEM. [Concomitant]
     Active Substance: MEROPENEM
  21. CLARITHROMYCIN. [Concomitant]
     Active Substance: CLARITHROMYCIN
  22. GRANULOCYTE COLONY-STIMULATING FACTOR [Concomitant]
     Active Substance: GRANULOCYTE COLONY-STIMULATING FACTOR NOS
  23. OMEPRAZOLE. [Concomitant]
     Active Substance: OMEPRAZOLE
  24. MYCOPHENOLATE MOFETIL. [Concomitant]
     Active Substance: MYCOPHENOLATE MOFETIL
  25. TRANEXAMIC ACID. [Concomitant]
     Active Substance: TRANEXAMIC ACID
  26. AMLODIPINE [Concomitant]
     Active Substance: AMLODIPINE BESYLATE
  27. CYCLOPHOSPHAMIDE. [Concomitant]
     Active Substance: CYCLOPHOSPHAMIDE
  28. PARACETAMOL [Concomitant]
     Active Substance: ACETAMINOPHEN
  29. ISAVUCONAZOLE [Concomitant]
     Active Substance: ISAVUCONAZOLE
  30. ACICLOVIR [Concomitant]
     Active Substance: ACYCLOVIR
  31. HYOSCINE BUTYLBROMIDE [Concomitant]
     Active Substance: BUTYLSCOPOLAMINE BROMIDE
  32. CIPROFLOXACIN. [Concomitant]
     Active Substance: CIPROFLOXACIN
  33. LETERMOVIR [Concomitant]
     Active Substance: LETERMOVIR
  34. MESNA. [Concomitant]
     Active Substance: MESNA
  35. METOCLOPRAMIDE. [Concomitant]
     Active Substance: METOCLOPRAMIDE
  36. LOPERAMIDE [Concomitant]
     Active Substance: LOPERAMIDE
  37. ONDANSETRON [Concomitant]
     Active Substance: ONDANSETRON

REACTIONS (7)
  - Neurotoxicity [Not Recovered/Not Resolved]
  - Depressed mood [Unknown]
  - Social avoidant behaviour [Unknown]
  - Leukoencephalopathy [Not Recovered/Not Resolved]
  - Communication disorder [Unknown]
  - Catatonia [Not Recovered/Not Resolved]
  - Cognitive disorder [Not Recovered/Not Resolved]

NARRATIVE: CASE EVENT DATE: 20200907
